FAERS Safety Report 15232105 (Version 2)
Quarter: 2018Q3

REPORT INFORMATION
  Report Type: Spontaneous
  Country: US (occurrence: US)
  Receive Date: 20180802
  Receipt Date: 20180820
  Transmission Date: 20181010
  Serious: No
  Sender: FDA-Public Use
  Company Number: US-PFIZER INC-2018309340

PATIENT
  Sex: Male

DRUGS (1)
  1. TESTOSTERONE CIPIONATE [Suspect]
     Active Substance: TESTOSTERONE
     Dosage: UNK

REACTIONS (4)
  - Muscle atrophy [Unknown]
  - Blood testosterone decreased [Unknown]
  - Cardiac disorder [Unknown]
  - Fat tissue increased [Unknown]
